FAERS Safety Report 9008375 (Version 1)
Quarter: 2013Q1

REPORT INFORMATION
  Report Type: Spontaneous
  Country: FR (occurrence: FR)
  Receive Date: 20130111
  Receipt Date: 20130111
  Transmission Date: 20140127
  Serious: Yes (Disabling, Other)
  Sender: FDA-Public Use
  Company Number: FR-NOVOPROD-368296

PATIENT
  Age: 17 Year
  Sex: Female

DRUGS (3)
  1. NOVORAPID [Suspect]
     Indication: PRODUCT USED FOR UNKNOWN INDICATION
     Dosage: UNK
     Route: 058
     Dates: start: 2009
  2. LEVOTHYROX [Concomitant]
  3. LANTUS [Concomitant]

REACTIONS (1)
  - Soft tissue atrophy [Recovered/Resolved with Sequelae]
